FAERS Safety Report 8573059-8 (Version None)
Quarter: 2012Q3

REPORT INFORMATION
  Report Type: 
  Country: None (occurrence: None)
  Receive Date: 20120806
  Receipt Date: 20120725
  Transmission Date: 20120928
  Serious: Yes (Other)
  Sender: FDA-Public Use
  Company Number: CA-ROCHE-785471

PATIENT
  Sex: Female
  Weight: 63.5 kg

DRUGS (19)
  1. DIPHENHYDRAMIN-HCL [Concomitant]
     Route: 048
     Dates: start: 20120725, end: 20120725
  2. ACETAMINOFEN [Concomitant]
     Route: 048
     Dates: start: 20120725, end: 20120725
  3. PREDNISONE [Concomitant]
  4. MABTHERA [Suspect]
     Indication: RHEUMATOID ARTHRITIS
     Dosage: FREQ: DAY 1, DAY 15
     Route: 042
  5. METHOTREXATE [Concomitant]
  6. TYLENOL (CAPLET) [Concomitant]
  7. FOLIC ACID [Concomitant]
  8. PMS-HYDROMORPHONE [Concomitant]
     Dosage: PRN
     Route: 048
  9. BIAXIN XL [Concomitant]
     Route: 048
  10. NOVO-SALMOL [Concomitant]
     Dosage: 2 PUFS 4 TIMES A DAY PRN
  11. RATIO-SALBUTAMOL [Concomitant]
     Dosage: 4-6 HOURS PRN
  12. CODEINE HYDROCHLORIDE [Concomitant]
  13. CALMYLIN WITH CODEINE [Concomitant]
     Dosage: EVERY 3-4 HOURS PRN
     Route: 048
  14. FLOVENT [Concomitant]
  15. FLUTICASONE PROPIONATE [Concomitant]
  16. METHYLPREDNISOLONE [Concomitant]
     Dates: start: 20120725, end: 20120725
  17. MABTHERA [Suspect]
  18. MABTHERA [Suspect]
  19. CORTISONE ACETATE [Concomitant]

REACTIONS (10)
  - ASTHMA [None]
  - EMPHYSEMA [None]
  - THROAT LESION [None]
  - PARAESTHESIA ORAL [None]
  - LEUKOPLAKIA [None]
  - INFUSION RELATED REACTION [None]
  - VOMITING [None]
  - EAR PRURITUS [None]
  - NAUSEA [None]
  - DYSPNOEA [None]
